FAERS Safety Report 11518647 (Version 1)
Quarter: 2015Q3

REPORT INFORMATION
  Report Type: Spontaneous
  Country: US (occurrence: US)
  Receive Date: 20150917
  Receipt Date: 20150917
  Transmission Date: 20151125
  Serious: No
  Sender: FDA-Public Use
  Company Number: GXBR2015US001843

PATIENT
  Sex: Female

DRUGS (1)
  1. CLOBETASOL PROPIONATE. [Suspect]
     Active Substance: CLOBETASOL PROPIONATE
     Indication: ALOPECIA
     Dosage: 0.05 %, 1 TO 2 TIMES QD
     Route: 061
     Dates: start: 20150628

REACTIONS (1)
  - Off label use [Unknown]
